FAERS Safety Report 11369659 (Version 1)
Quarter: 2015Q3

REPORT INFORMATION
  Report Type: Spontaneous
  Country: US (occurrence: None)
  Receive Date: 20150811
  Receipt Date: 20150811
  Transmission Date: 20151125
  Serious: Yes (Other)
  Sender: FDA-Public Use
  Company Number: None

PATIENT
  Age: 54 Year
  Sex: Female

DRUGS (1)
  1. XELODA [Suspect]
     Active Substance: CAPECITABINE
     Dosage: 500 4TBID X 14 ON 7 OFF
     Route: 048
     Dates: start: 20150810

REACTIONS (1)
  - Metastasis [None]

NARRATIVE: CASE EVENT DATE: 20150810
